FAERS Safety Report 5662625-5 (Version None)
Quarter: 2008Q1

REPORT INFORMATION
  Report Type: 
  Country: None (occurrence: None)
  Receive Date: 20080313
  Receipt Date: 20080305
  Transmission Date: 20080703
  Serious: Yes (Other)
  Sender: FDA-Public Use
  Company Number: US-ROCHE-509532

PATIENT
  Sex: Male
  Weight: 99.8 kg

DRUGS (17)
  1. ACCUTANE [Suspect]
     Route: 065
     Dates: start: 20001016
  2. ACCUTANE [Suspect]
     Route: 065
     Dates: start: 20001113
  3. ACCUTANE [Suspect]
     Route: 065
     Dates: start: 20001201
  4. ACCUTANE [Suspect]
     Route: 065
     Dates: start: 20001211
  5. ACCUTANE [Suspect]
     Route: 065
     Dates: start: 20010102
  6. ACCUTANE [Suspect]
     Route: 065
     Dates: start: 20010104
  7. ACCUTANE [Suspect]
     Route: 065
     Dates: start: 20010131
  8. ACCUTANE [Suspect]
     Route: 065
     Dates: start: 20010301
  9. ACCUTANE [Suspect]
     Route: 065
     Dates: start: 20010327
  10. ACCUTANE [Suspect]
     Route: 065
     Dates: start: 20010511, end: 20010630
  11. BENZOYL PEROXIDE 5% [Concomitant]
  12. ERYGEL 2% [Concomitant]
  13. HYDROCODONE BITARTRATE + ACETAMINOPHEN [Concomitant]
  14. CLINDAMYCIN HYDROCHLORIDE [Concomitant]
  15. MINOCYCLINE HCL [Concomitant]
  16. ACETAMINOPHEN AND OXYCODONE HCL [Concomitant]
  17. CLEOCIN T [Concomitant]

REACTIONS (26)
  - ABDOMINAL PAIN [None]
  - ANXIETY [None]
  - ARTHRITIS [None]
  - BACK PAIN [None]
  - CELLULITIS [None]
  - CHILLS [None]
  - COLITIS ULCERATIVE [None]
  - CROHN'S DISEASE [None]
  - DYSURIA [None]
  - EROSIVE OESOPHAGITIS [None]
  - FATIGUE [None]
  - GASTRITIS [None]
  - GASTROOESOPHAGEAL REFLUX DISEASE [None]
  - HIATUS HERNIA [None]
  - HYPERTENSION [None]
  - INFLAMMATORY BOWEL DISEASE [None]
  - INSOMNIA [None]
  - IRRITABLE BOWEL SYNDROME [None]
  - NAUSEA [None]
  - OEDEMA PERIPHERAL [None]
  - OSTEOMYELITIS [None]
  - PROCTITIS [None]
  - RECTAL HAEMORRHAGE [None]
  - SKIN PAPILLOMA [None]
  - TOOTH DISORDER [None]
  - VOMITING [None]
